FAERS Safety Report 19602662 (Version 3)
Quarter: 2021Q4

REPORT INFORMATION
  Report Type: Spontaneous
  Country: US (occurrence: US)
  Receive Date: 20210723
  Receipt Date: 20211019
  Transmission Date: 20220303
  Serious: Yes (Other)
  Sender: FDA-Public Use
  Company Number: US-PFIZER INC-2019075832

PATIENT
  Age: 60 Year
  Sex: Female

DRUGS (3)
  1. LYRICA [Suspect]
     Active Substance: PREGABALIN
     Indication: Pain
     Dosage: 100 MG, 1X/DAY (AT BEDTIME)(100 MG TOTAL BY MOUTH AT BEDTIME)
     Route: 048
     Dates: start: 20190212, end: 2019
  2. LYRICA [Suspect]
     Active Substance: PREGABALIN
     Indication: Gait disturbance
     Dosage: 200 MG, 3X/DAY (1 CAPSULE (200 MG TOTAL) BY MOUTH 3 (THREE) TIMES A DAY)
     Route: 048
  3. LYRICA [Suspect]
     Active Substance: PREGABALIN
     Dosage: 700 MG, DAILY, (100 MG AN ADDITION OF 200 MG, 3X/DAY)
     Route: 048
     Dates: start: 20190411

REACTIONS (3)
  - Cataract [Unknown]
  - Prescribed overdose [Unknown]
  - Off label use [Unknown]

NARRATIVE: CASE EVENT DATE: 20190411
